FAERS Safety Report 7414499-X (Version None)
Quarter: 2011Q2

REPORT INFORMATION
  Report Type: 
  Country: None (occurrence: None)
  Receive Date: 20110411
  Receipt Date: 20110411
  Transmission Date: 20111010
  Serious: Yes (Hospitalization)
  Sender: FDA-Public Use
  Company Number: None

PATIENT
  Age: 81 Year
  Sex: Male
  Weight: 75 kg

DRUGS (2)
  1. CEFPODOXIME PROXETIL [Suspect]
     Indication: UPPER RESPIRATORY TRACT INFECTION
     Dosage: 400 MG BID PO
     Route: 048
     Dates: start: 20101030, end: 20101102
  2. LISINOPRIL [Suspect]
     Indication: HYPERTENSION
     Dosage: 40MG EVERY DAY PO
     Route: 048
     Dates: start: 20041025, end: 20101029

REACTIONS (1)
  - ANGIOEDEMA [None]
